FAERS Safety Report 16263477 (Version 3)
Quarter: 2019Q3

REPORT INFORMATION
  Report Type: Report from Study
  Country: CN (occurrence: CN)
  Receive Date: 20190502
  Receipt Date: 20190710
  Transmission Date: 20191004
  Serious: Yes (Life-Threatening, Hospitalization, Other)
  Sender: FDA-Public Use
  Company Number: CN-TAKEDA-2019TUS026155

PATIENT
  Age: 38 Year
  Sex: Male
  Weight: 79 kg

DRUGS (5)
  1. ACETIC ACID. [Concomitant]
     Active Substance: ACETIC ACID
     Indication: COLITIS ULCERATIVE
     Dosage: 40 MILLIGRAM, TID
     Route: 048
     Dates: start: 201810
  2. MESALAMINE. [Concomitant]
     Active Substance: MESALAMINE
     Indication: COLITIS ULCERATIVE
     Dosage: UNK UNK, QD
     Route: 048
     Dates: start: 201708
  3. VEDOLIZUMAB [Suspect]
     Active Substance: VEDOLIZUMAB
     Indication: COLITIS ULCERATIVE
     Dosage: UNK
     Route: 042
     Dates: start: 20190118
  4. AZATHIOPRINE. [Concomitant]
     Active Substance: AZATHIOPRINE
     Indication: COLITIS ULCERATIVE
     Dosage: 100 MILLIGRAM, QD
     Route: 048
     Dates: start: 201712
  5. PREDNISONE. [Concomitant]
     Active Substance: PREDNISONE
     Indication: COLITIS ULCERATIVE
     Dosage: 15 MILLIGRAM, BID
     Route: 048
     Dates: start: 201806

REACTIONS (1)
  - Pulmonary embolism [Not Recovered/Not Resolved]

NARRATIVE: CASE EVENT DATE: 20190424
